FAERS Safety Report 7512420-7 (Version None)
Quarter: 2011Q2

REPORT INFORMATION
  Report Type: 
  Country: None (occurrence: None)
  Receive Date: 20110531
  Receipt Date: 20110523
  Transmission Date: 20111010
  Serious: Yes (Hospitalization)
  Sender: FDA-Public Use
  Company Number: FR-ROCHE-771537

PATIENT
  Sex: Female

DRUGS (3)
  1. TAXOTERE [Suspect]
     Route: 042
     Dates: start: 20100301, end: 20100901
  2. AVASTIN [Suspect]
     Route: 065
  3. TAXANES [Concomitant]

REACTIONS (1)
  - PERICARDITIS [None]
